FAERS Safety Report 10203689 (Version 3)
Quarter: 2014Q3

REPORT INFORMATION
  Report Type: Spontaneous
  Country: AU (occurrence: None)
  Receive Date: 20140523
  Receipt Date: 20140721
  Transmission Date: 20150326
  Serious: Yes (Other)
  Sender: FDA-Public Use
  Company Number: AUR-APL-2014-05999

PATIENT
  Sex: Female

DRUGS (5)
  1. ONDANSETRON [Concomitant]
     Active Substance: ONDANSETRON
  2. NIFEDIPINE (NIFEDIPINE) [Concomitant]
  3. ELEVIT RDI (MINERALS NOS W/VITAMINS NOS) [Concomitant]
  4. QUETIAPINE [Suspect]
     Active Substance: QUETIAPINE
     Indication: PRODUCT USED FOR UNKNOWN INDICATION
     Route: 064
  5. ASPIRIN (ACETYLSALICYLIC ACID) [Concomitant]
     Active Substance: ASPIRIN

REACTIONS (12)
  - Vomiting projectile [None]
  - Maternal drugs affecting foetus [None]
  - Somnolence neonatal [None]
  - Foetal distress syndrome [None]
  - Foetal exposure during pregnancy [None]
  - Drug withdrawal syndrome neonatal [None]
  - Diarrhoea neonatal [None]
  - Reflexes abnormal [None]
  - Feeding disorder neonatal [None]
  - Tremor neonatal [None]
  - Caesarean section [None]
  - Somnolence [None]

NARRATIVE: CASE EVENT DATE: 20121114
